FAERS Safety Report 25569001 (Version 1)
Quarter: 2025Q3

REPORT INFORMATION
  Report Type: Spontaneous
  Country: EU (occurrence: EU)
  Receive Date: 20250716
  Receipt Date: 20250716
  Transmission Date: 20251021
  Serious: Yes (Other)
  Sender: SK LIFE SCIENCE
  Company Number: None

PATIENT

DRUGS (3)
  1. XCOPRI [Suspect]
     Active Substance: CENOBAMATE
     Indication: Epilepsy
     Dosage: 300 MILLIGRAM(S) (150 MILLIGRAM(S), IN 1 TOTAL)
     Route: 048
     Dates: start: 20250301, end: 20250301
  2. ESLICARBAZEPINE ACETATE [Suspect]
     Active Substance: ESLICARBAZEPINE ACETATE
     Indication: Epilepsy
     Dosage: 1600 MILLIGRAM(S) (800 MILLIGRAM(S), IN 1 TOTAL)
     Route: 048
     Dates: start: 20250301, end: 20250301
  3. BRIVIACT 25 MG COMPRIMIDOS RECUBIERTOS CON PELICULA [Concomitant]
     Indication: Epilepsy
     Dosage: (250 MILLIGRAM(S), IN 1 DAY)
     Route: 048
     Dates: start: 202012

REACTIONS (4)
  - Product administration error [Recovered/Resolved]
  - Diplopia [Recovered/Resolved]
  - Dizziness [Recovered/Resolved]
  - Somnolence [Recovered/Resolved]

NARRATIVE: CASE EVENT DATE: 20250301
